FAERS Safety Report 7471763-6 (Version None)
Quarter: 2011Q2

REPORT INFORMATION
  Report Type: 
  Country: None (occurrence: None)
  Receive Date: 20110511
  Receipt Date: 20100330
  Transmission Date: 20111010
  Serious: No
  Sender: FDA-Public Use
  Company Number: A0853480A

PATIENT
  Age: 62 Year
  Sex: Female

DRUGS (1)
  1. TYKERB [Suspect]
     Indication: BREAST CANCER
     Dosage: 1000MG TWICE PER DAY
     Route: 048

REACTIONS (2)
  - DRUG ADMINISTRATION ERROR [None]
  - INAPPROPRIATE SCHEDULE OF DRUG ADMINISTRATION [None]
